FAERS Safety Report 8321722-6 (Version None)
Quarter: 2012Q2

REPORT INFORMATION
  Report Type: 
  Country: None (occurrence: None)
  Receive Date: 20120430
  Receipt Date: 20120419
  Transmission Date: 20120825
  Serious: Yes (Other)
  Sender: FDA-Public Use
  Company Number: JP-ASTRAZENECA-2012SE26806

PATIENT
  Age: 16 Year
  Sex: Female

DRUGS (1)
  1. ROPIVACAINE HYDROCHLORIDE [Suspect]
     Indication: NERVE BLOCK
     Route: 053

REACTIONS (3)
  - CONVULSION [None]
  - DELAYED RECOVERY FROM ANAESTHESIA [None]
  - TOXICITY TO VARIOUS AGENTS [None]
